FAERS Safety Report 8844864 (Version 1)
Quarter: 2012Q4

REPORT INFORMATION
  Report Type: 
  Country: CA (occurrence: CA)
  Receive Date: 20121017
  Receipt Date: 20121017
  Transmission Date: 20130627
  Serious: Yes (Other)
  Sender: FDA-Public Use
  Company Number: CA-ELI_LILLY_AND_COMPANY-CA201210001843

PATIENT
  Age: 60 Year
  Sex: Male
  Weight: 115.19 kg

DRUGS (6)
  1. CYMBALTA [Suspect]
     Dosage: 30 mg, qd
     Route: 048
  2. CYMBALTA [Suspect]
     Dosage: 60 mg, qd
     Route: 048
  3. METOCLOPRAMIDE [Concomitant]
  4. MORPHINE [Concomitant]
  5. SALOFALK [Concomitant]
  6. TYLENOL /00020001/ [Concomitant]

REACTIONS (4)
  - Depression [Unknown]
  - Nightmare [Unknown]
  - Screaming [Unknown]
  - Urticaria [Unknown]
